FAERS Safety Report 4496537-X (Version None)
Quarter: 2004Q3

REPORT INFORMATION
  Report Type: 
  Country: None (occurrence: None)
  Receive Date: 20040923
  Receipt Date: 20030919
  Transmission Date: 20050211
  Serious: Yes (Other)
  Sender: FDA-Public Use
  Company Number: 2003039649

PATIENT
  Age: 11 Year
  Sex: Male
  Weight: 43.0917 kg

DRUGS (1)
  1. ZYRTEC [Suspect]
     Indication: HYPERSENSITIVITY
     Dosage: 5 MG (DAILY), ORAL
     Route: 048
     Dates: start: 20030501, end: 20030918

REACTIONS (2)
  - MUSCLE TWITCHING [None]
  - UNEVALUABLE EVENT [None]
